FAERS Safety Report 20919193 (Version 4)
Quarter: 2022Q3

REPORT INFORMATION
  Report Type: Report from Study
  Country: US (occurrence: US)
  Receive Date: 20220606
  Receipt Date: 20220905
  Transmission Date: 20221027
  Serious: Yes (Other)
  Sender: FDA-Public Use
  Company Number: US-MMM-2EMQS4DL

PATIENT

DRUGS (1)
  1. BELANTAMAB MAFODOTIN [Suspect]
     Active Substance: BELANTAMAB MAFODOTIN
     Indication: Product used for unknown indication
     Dosage: UNK
     Dates: start: 20220310, end: 20220511

REACTIONS (4)
  - Plasma cell myeloma [Unknown]
  - Keratopathy [Unknown]
  - Corneal oedema [Unknown]
  - Ill-defined disorder [Unknown]
